FAERS Safety Report 15369995 (Version 1)
Quarter: 2018Q3

REPORT INFORMATION
  Report Type: Spontaneous
  Country: FI (occurrence: FI)
  Receive Date: 20180911
  Receipt Date: 20180911
  Transmission Date: 20181010
  Serious: Yes (Hospitalization, Other)
  Sender: FDA-Public Use
  Company Number: FI-AUROBINDO-AUR-APL-2018-044456

PATIENT
  Age: 52 Year
  Sex: Male

DRUGS (15)
  1. LEPONEX [Suspect]
     Active Substance: CLOZAPINE
     Dosage: 500 UNK
     Dates: start: 20180702
  2. LEPONEX [Suspect]
     Active Substance: CLOZAPINE
     Dosage: 25 MILLIGRAM, DAILY
     Dates: start: 20180510, end: 2018
  3. LEPONEX [Suspect]
     Active Substance: CLOZAPINE
     Dosage: 12.5 UNK
     Dates: start: 20180509, end: 20180509
  4. TEMESTA                            /00273201/ [Concomitant]
     Active Substance: LORAZEPAM
     Indication: PRODUCT USED FOR UNKNOWN INDICATION
     Dosage: UNK, AS NECESSARY
     Route: 065
  5. QUETIAPINE. [Suspect]
     Active Substance: QUETIAPINE
     Indication: PRODUCT USED FOR UNKNOWN INDICATION
     Dosage: UNK
     Route: 065
  6. AMISULPRIDE [Suspect]
     Active Substance: AMISULPRIDE
     Indication: PRODUCT USED FOR UNKNOWN INDICATION
     Dosage: UNK
     Route: 065
  7. LEPONEX [Suspect]
     Active Substance: CLOZAPINE
     Dosage: UNK
     Route: 065
     Dates: start: 2014
  8. SPARTOFER [Concomitant]
     Indication: PRODUCT USED FOR UNKNOWN INDICATION
     Dosage: 100 MILLIGRAM, TWO TIMES A DAY
     Route: 065
  9. KALCIPOS?D [Concomitant]
     Active Substance: CALCIUM CARBONATE\CHOLECALCIFEROL
     Indication: PRODUCT USED FOR UNKNOWN INDICATION
     Dosage: UNK
     Route: 065
  10. OLANZAPINE. [Suspect]
     Active Substance: OLANZAPINE
     Indication: PRODUCT USED FOR UNKNOWN INDICATION
     Dosage: UNK
     Route: 065
  11. LEPONEX [Suspect]
     Active Substance: CLOZAPINE
     Indication: SCHIZOPHRENIA
     Dosage: 300 MILLIGRAM, DAILY
     Route: 065
     Dates: start: 201805, end: 2018
  12. MULTIVITAMINUM [Concomitant]
     Indication: PRODUCT USED FOR UNKNOWN INDICATION
     Dosage: 1 DOSAGE FORM, DAILY
     Route: 065
  13. TEMESTA                            /00273201/ [Concomitant]
     Active Substance: LORAZEPAM
     Dosage: 1 DOSAGE FORM, 3 TIMES A DAY
     Route: 065
  14. VENTOLINE                          /00139501/ [Concomitant]
     Active Substance: ALBUTEROL
     Indication: PRODUCT USED FOR UNKNOWN INDICATION
     Dosage: 1 DOSAGE FORM, AS NECESSARY
     Route: 065
  15. LEVOLAC [Concomitant]
     Active Substance: LACTULOSE
     Indication: PRODUCT USED FOR UNKNOWN INDICATION
     Dosage: 30 MILLILITER, DAILY
     Route: 065

REACTIONS (7)
  - Food refusal [Unknown]
  - Aggression [Recovered/Resolved]
  - Psychotic disorder [Unknown]
  - Neutrophil count increased [Recovered/Resolved]
  - Abnormal behaviour [Unknown]
  - Neutropenia [Recovering/Resolving]
  - Patient isolation [Recovered/Resolved]

NARRATIVE: CASE EVENT DATE: 2016
